FAERS Safety Report 4427434-3 (Version None)
Quarter: 2004Q3

REPORT INFORMATION
  Report Type: 
  Country: None (occurrence: None)
  Receive Date: 20040812
  Receipt Date: 20040802
  Transmission Date: 20050211
  Serious: Yes (Death)
  Sender: FDA-Public Use
  Company Number: 8006794

PATIENT
  Age: 41 Year
  Sex: Male
  Weight: 115 kg

DRUGS (2)
  1. KEPPRA [Suspect]
     Indication: CONVULSION
     Dosage: PO
     Route: 048
     Dates: start: 20030501, end: 20040501
  2. ZOLOFT [Suspect]
     Indication: DEPRESSION
     Dosage: PO
     Route: 048
     Dates: end: 20040501

REACTIONS (5)
  - CIRCULATORY COLLAPSE [None]
  - CONVULSION [None]
  - EPISTAXIS [None]
  - OVERDOSE [None]
  - STATUS EPILEPTICUS [None]
